FAERS Safety Report 7265882-7 (Version None)
Quarter: 2011Q1

REPORT INFORMATION
  Report Type: 
  Country: None (occurrence: None)
  Receive Date: 20110131
  Receipt Date: 20110124
  Transmission Date: 20110831
  Serious: Yes (Hospitalization)
  Sender: FDA-Public Use
  Company Number: B0690172A

PATIENT
  Sex: Male

DRUGS (5)
  1. AVOLVE [Suspect]
     Indication: BENIGN PROSTATIC HYPERPLASIA
     Dosage: .5MG PER DAY
     Route: 048
     Dates: start: 20101004, end: 20101215
  2. RIFADIN [Concomitant]
     Dosage: 450MG PER DAY
     Route: 048
  3. EBUTOL [Concomitant]
     Dosage: 500MG PER DAY
     Route: 048
  4. ISCOTIN [Concomitant]
     Dosage: 300MG PER DAY
     Route: 048
  5. PYDOXAL [Concomitant]
     Dosage: 20MG PER DAY
     Route: 048

REACTIONS (1)
  - BLOOD GLUCOSE INCREASED [None]
